FAERS Safety Report 11717911 (Version 1)
Quarter: 2015Q4

REPORT INFORMATION
  Report Type: Spontaneous
  Country: US (occurrence: None)
  Receive Date: 20151109
  Receipt Date: 20151109
  Transmission Date: 20160304
  Serious: Yes (Life-Threatening, Hospitalization, Other)
  Sender: FDA-Public Use
  Company Number: None

PATIENT
  Age: 59 Year
  Sex: Male
  Weight: 92.99 kg

DRUGS (13)
  1. ASPIRIN. [Concomitant]
     Active Substance: ASPIRIN
  2. METOPROLOL SUCC [Concomitant]
     Active Substance: METOPROLOL SUCCINATE
  3. MULTI (VITAMIN) [Concomitant]
  4. HYDROCHLOROTHIZIDE [Concomitant]
     Active Substance: HYDROCHLOROTHIAZIDE
  5. NIACIN ER [Concomitant]
     Active Substance: NIACIN
  6. MAGNESIUM AND ZINC [Concomitant]
  7. CALCIUM CITRATE [Concomitant]
     Active Substance: CALCIUM CITRATE
  8. RANEXA [Concomitant]
     Active Substance: RANOLAZINE
  9. RAMPIRIL [Suspect]
     Active Substance: RAMIPRIL
     Indication: BLOOD PRESSURE INCREASED
     Route: 048
     Dates: start: 20150602, end: 20151105
  10. AVORASTATIN [Concomitant]
  11. GLUCOSAMINE HCL [Concomitant]
     Active Substance: GLUCOSAMINE
  12. VITAMIN D3 [Concomitant]
     Active Substance: CHOLECALCIFEROL
  13. CALCIUM VITAMIN D3 [Concomitant]

REACTIONS (3)
  - Swollen tongue [None]
  - Dysarthria [None]
  - Angioedema [None]

NARRATIVE: CASE EVENT DATE: 20151104
